FAERS Safety Report 8439710 (Version 7)
Quarter: 2013Q2

REPORT INFORMATION
  Report Type: Spontaneous
  Country: US (occurrence: US)
  Receive Date: 20120305
  Receipt Date: 20130404
  Transmission Date: 20140414
  Serious: No
  Sender: FDA-Public Use
  Company Number: US-PFIZER INC-2012052701

PATIENT
  Age: 33 Year
  Sex: Female

DRUGS (2)
  1. VISTARIL [Suspect]
     Dosage: UNK
  2. HYDROXYZINE [Suspect]
     Dosage: UNK

REACTIONS (2)
  - Urticaria [Unknown]
  - Hypersensitivity [Unknown]
